FAERS Safety Report 14471376 (Version 1)
Quarter: 2018Q1

REPORT INFORMATION
  Report Type: Spontaneous
  Country: US (occurrence: US)
  Receive Date: 20180131
  Receipt Date: 20180131
  Transmission Date: 20180509
  Serious: Yes (Life-Threatening, Hospitalization)
  Sender: FDA-Public Use
  Company Number: None

PATIENT
  Age: 57 Year
  Sex: Female
  Weight: 65.77 kg

DRUGS (5)
  1. KLONOPIN [Concomitant]
     Active Substance: CLONAZEPAM
  2. LEXAPRO [Concomitant]
     Active Substance: ESCITALOPRAM OXALATE
  3. ZOLPEDIEM [Suspect]
     Active Substance: ZOLPIDEM\ZOLPIDEM TARTRATE
     Indication: SLEEP DISORDER
     Dosage: 10 MG 1 NIGHT ORAL
     Route: 048
     Dates: start: 200702, end: 201710
  4. LAMOTRIGINE. [Suspect]
     Active Substance: LAMOTRIGINE
     Indication: DEPRESSION
     Dosage: 100 MG 1 NIGHT ORAL
     Route: 048
     Dates: start: 201602, end: 201710
  5. LAMOTRIGINE. [Suspect]
     Active Substance: LAMOTRIGINE
     Indication: BIPOLAR II DISORDER
     Dosage: 100 MG 1 NIGHT ORAL
     Route: 048
     Dates: start: 201602, end: 201710

REACTIONS (5)
  - Thinking abnormal [None]
  - Substance abuser [None]
  - Sleep-related eating disorder [None]
  - Somnambulism [None]
  - Suicide attempt [None]

NARRATIVE: CASE EVENT DATE: 20171001
